FAERS Safety Report 15638143 (Version 1)
Quarter: 2018Q4

REPORT INFORMATION
  Report Type: Spontaneous
  Country: BG (occurrence: BG)
  Receive Date: 20181120
  Receipt Date: 20181120
  Transmission Date: 20190205
  Serious: Yes (Hospitalization, Other)
  Sender: FDA-Public Use
  Company Number: BG-ASTRAZENECA-2018SF51799

PATIENT
  Age: 72 Year
  Sex: Male

DRUGS (8)
  1. DEHYDRATIN NEO [Concomitant]
     Dosage: 12.5MG UNKNOWN
  2. BRILIQUE [Suspect]
     Active Substance: TICAGRELOR
     Route: 048
  3. ROSUVASTATIN. [Suspect]
     Active Substance: ROSUVASTATIN
     Route: 048
  4. BRILIQUE [Suspect]
     Active Substance: TICAGRELOR
     Route: 048
  5. VALSARTAN. [Concomitant]
     Active Substance: VALSARTAN
     Dosage: 160.0MG UNKNOWN
  6. PANTOPRAZOLE [Concomitant]
     Active Substance: PANTOPRAZOLE
  7. ACETYLSALICYLIC ACID [Concomitant]
     Active Substance: ASPIRIN
  8. BISOPROLOL [Concomitant]
     Active Substance: BISOPROLOL
     Dosage: 5.0MG UNKNOWN

REACTIONS (1)
  - Angina pectoris [Unknown]
